FAERS Safety Report 9890823 (Version 3)
Quarter: 2014Q3

REPORT INFORMATION
  Report Type: Spontaneous
  Country: CA (occurrence: CA)
  Receive Date: 20140212
  Receipt Date: 20140718
  Transmission Date: 20150326
  Serious: Yes (Other)
  Sender: FDA-Public Use
  Company Number: CA-ASTELLAS-2014US001344

PATIENT
  Age: 53 Year
  Sex: Female

DRUGS (2)
  1. ADVAGRAF [Suspect]
     Active Substance: TACROLIMUS
     Indication: RENAL TRANSPLANT
     Dosage: 5 MG, DAILY
     Route: 048
     Dates: start: 20140125
  2. ADVAGRAF [Suspect]
     Active Substance: TACROLIMUS
     Dosage: 4 MG  DAILY
     Route: 048
     Dates: start: 20140711

REACTIONS (5)
  - Gait disturbance [Unknown]
  - Immunosuppressant drug level increased [Unknown]
  - Cataract [Unknown]
  - Arthralgia [Unknown]
  - Joint effusion [Unknown]

NARRATIVE: CASE EVENT DATE: 20140125
